FAERS Safety Report 4811526-0 (Version None)
Quarter: 2005Q4

REPORT INFORMATION
  Report Type: 
  Country: None (occurrence: None)
  Receive Date: 20051027
  Receipt Date: 20050331
  Transmission Date: 20060501
  Serious: Yes (Hospitalization)
  Sender: FDA-Public Use
  Company Number: US-ABBOTT-05P-163-0295773-00

PATIENT
  Sex: Male
  Weight: 68.1 kg

DRUGS (14)
  1. HUMIRA 40 MG/ 0.8 ML PRE-FILLED SYRINGE [Suspect]
     Indication: RHEUMATOID ARTHRITIS
     Route: 058
     Dates: start: 20040927
  2. LISINOPRIL [Concomitant]
     Indication: BLOOD PRESSURE INCREASED
     Route: 048
  3. PREDNISONE [Concomitant]
     Indication: RHEUMATOID ARTHRITIS
     Route: 048
  4. DARVOCET [Concomitant]
     Indication: PAIN
     Route: 048
     Dates: start: 20050328
  5. LEKOVIT CA [Concomitant]
     Indication: DRUG USE FOR UNKNOWN INDICATION
     Route: 048
  6. FOLIC ACID [Concomitant]
     Indication: RHEUMATOID ARTHRITIS
     Route: 048
  7. DONEPEZIL HYDROCHLORIDE [Concomitant]
     Indication: DEMENTIA ALZHEIMER'S TYPE
     Route: 048
  8. TERAZOSIN HYDROCHLORIDE [Concomitant]
     Indication: PROSTATIC DISORDER
     Route: 048
  9. PROPRANOLOL [Concomitant]
     Indication: BLOOD PRESSURE INCREASED
     Route: 048
  10. HYDROCHLOROTHIAZIDE [Concomitant]
     Indication: DIURETIC THERAPY
     Route: 048
  11. HYDROCHLOROTHIAZIDE [Concomitant]
     Indication: BLOOD PRESSURE INCREASED
  12. SERETIDE MITE [Concomitant]
     Indication: DRUG USE FOR UNKNOWN INDICATION
     Route: 055
  13. ASPIRIN [Concomitant]
     Indication: DRUG USE FOR UNKNOWN INDICATION
     Route: 048
  14. CYANOCOBALAMIN [Concomitant]
     Indication: DRUG USE FOR UNKNOWN INDICATION
     Route: 050

REACTIONS (4)
  - EXCORIATION [None]
  - FALL [None]
  - HIP FRACTURE [None]
  - NASOPHARYNGITIS [None]
